FAERS Safety Report 8508631-4 (Version None)
Quarter: 2012Q3

REPORT INFORMATION
  Report Type: 
  Country: None (occurrence: None)
  Receive Date: 20120713
  Receipt Date: 20120710
  Transmission Date: 20120928
  Serious: Yes (Death)
  Sender: FDA-Public Use
  Company Number: US-B.I. PHARMACEUTICALS,INC./RIDGEFIELD-2012-BP-14038BP

PATIENT
  Sex: Male
  Weight: 117.93 kg

DRUGS (11)
  1. INSULIN INSULATARD NPH NORDISK [Concomitant]
     Indication: DIABETES MELLITUS
     Dosage: 24 U
  2. VYTORIN [Concomitant]
  3. ZOCOR [Concomitant]
     Indication: BLOOD CHOLESTEROL INCREASED
     Route: 048
  4. AMLODIPINE [Concomitant]
  5. BETA BLOCKERS [Concomitant]
  6. LASIX [Concomitant]
  7. CLONIDINE [Concomitant]
  8. PRADAXA [Suspect]
     Indication: ATRIAL FIBRILLATION
     Dosage: 300 MG
     Dates: start: 20120522, end: 20120609
  9. BLOOD PRESSURE PILLS [Concomitant]
  10. ASPIRIN [Suspect]
     Dates: end: 20120522
  11. JANUVIA [Concomitant]

REACTIONS (7)
  - HEPATIC FAILURE [None]
  - LIVER FUNCTION TEST ABNORMAL [None]
  - RENAL FAILURE [None]
  - PAIN [None]
  - MALAISE [None]
  - REYE'S SYNDROME [None]
  - INTERNATIONAL NORMALISED RATIO INCREASED [None]
